FAERS Safety Report 4497395-X (Version None)
Quarter: 2004Q4

REPORT INFORMATION
  Report Type: 
  Country: None (occurrence: None)
  Receive Date: 20041110
  Receipt Date: 20040921
  Transmission Date: 20050328
  Serious: Yes (Hospitalization)
  Sender: FDA-Public Use
  Company Number: 200417213US

PATIENT
  Sex: Female

DRUGS (19)
  1. KETEK [Suspect]
     Indication: BRONCHITIS ACUTE
     Dates: start: 20040917, end: 20040921
  2. TOPROL-XL [Concomitant]
  3. ASPIRIN [Concomitant]
  4. LIPITOR [Concomitant]
  5. PRILOSEC [Concomitant]
     Dosage: DOSE: UNK
  6. ZESTRIL [Concomitant]
  7. BENICAR                                 /USA/ [Concomitant]
  8. OPHTHALMOLOGICALS [Concomitant]
     Dosage: DOSE: UNK
  9. PREDNISONE [Concomitant]
     Dosage: DOSE: UNK
  10. ALBUTEROL [Concomitant]
     Dosage: DOSE: UNK
  11. IPRATROPIUM BROMIDE [Concomitant]
     Dosage: DOSE: UNK
  12. FLOVENT [Concomitant]
     Dosage: DOSE: 2 PUFFS
  13. SEREVENT [Concomitant]
     Dosage: DOSE: 2 PUFFS
  14. PILOCARPINE HCL [Concomitant]
     Dosage: DOSE: EACH EYE
  15. AZOPT [Concomitant]
     Dosage: DOSE: EACH EYE
  16. PREDNISONE [Concomitant]
     Dosage: DOSE: UNK
  17. EVISTA [Concomitant]
  18. HYDROCODONE [Concomitant]
     Dosage: DOSE: UNK
  19. PREDNISONE [Concomitant]
     Dosage: DOSE: UNK

REACTIONS (11)
  - ARTHRALGIA [None]
  - BLOOD PRESSURE INCREASED [None]
  - CEREBRAL ATROPHY [None]
  - COMA [None]
  - CONFUSIONAL STATE [None]
  - CONVULSION [None]
  - DIZZINESS [None]
  - HUMERUS FRACTURE [None]
  - LETHARGY [None]
  - MIOSIS [None]
  - TREMOR [None]
